FAERS Safety Report 6378053-3 (Version None)
Quarter: 2009Q3

REPORT INFORMATION
  Report Type: 
  Country: None (occurrence: None)
  Receive Date: 20090925
  Receipt Date: 20090915
  Transmission Date: 20100115
  Serious: Yes (Death, Other)
  Sender: FDA-Public Use
  Company Number: JP-ABBOTT-09P-087-0599228-00

PATIENT
  Age: 97 Year
  Sex: Male

DRUGS (1)
  1. LEUPLIN SR FOR INJECTION 11.25 MG [Suspect]
     Indication: PROSTATE CANCER
     Route: 058
     Dates: start: 20061127, end: 20080212

REACTIONS (2)
  - CARDIO-RESPIRATORY ARREST [None]
  - SUBARACHNOID HAEMORRHAGE [None]
